FAERS Safety Report 9108564 (Version 3)
Quarter: 2014Q2

REPORT INFORMATION
  Report Type: Spontaneous
  Country: US (occurrence: US)
  Receive Date: 20130222
  Receipt Date: 20140618
  Transmission Date: 20141212
  Serious: Yes (Hospitalization)
  Sender: FDA-Public Use
  Company Number: US-BAYER-2013-021749

PATIENT
  Age: 24 Year
  Sex: Female
  Weight: 47.62 kg

DRUGS (11)
  1. GIANVI [Suspect]
     Indication: ACNE
     Dosage: UNK
     Dates: start: 20100426, end: 20120410
  2. GIANVI [Suspect]
     Indication: CONTRACEPTION
  3. YAZ [Suspect]
     Indication: CONTRACEPTION
     Dosage: UNK
     Dates: start: 20080330, end: 201004
  4. YAZ [Suspect]
     Indication: CONTRACEPTION
     Dosage: UNK
     Dates: start: 20090910
  5. YAZ [Suspect]
     Indication: CONTRACEPTION
     Dosage: UNK
     Dates: start: 20091206, end: 20100425
  6. LORAZEPAM [Concomitant]
     Dosage: 0.5 MG, 1 TABLET EVERY 6 HOURS AS NEEDED
     Route: 048
  7. OMEPRAZOLE [Concomitant]
     Route: 048
  8. LORTAB [Concomitant]
  9. FAMOTIDINE [Concomitant]
  10. HYDROCODONE W/ACETAMINOPHEN [Concomitant]
  11. PRILOSEC [Concomitant]

REACTIONS (9)
  - Pulmonary embolism [Recovered/Resolved]
  - Injury [Recovered/Resolved]
  - Pain [None]
  - Fear of disease [None]
  - Anhedonia [None]
  - Pain [Recovered/Resolved]
  - Pulmonary infarction [None]
  - Chest pain [Recovered/Resolved]
  - Dyspnoea [Recovered/Resolved]
